FAERS Safety Report 9459405 (Version 2)
Quarter: 2013Q3

REPORT INFORMATION
  Report Type: Spontaneous
  Country: US (occurrence: US)
  Receive Date: 20130815
  Receipt Date: 20130826
  Transmission Date: 20140515
  Serious: Yes (Other)
  Sender: FDA-Public Use
  Company Number: US-009507513-1308USA003389

PATIENT
  Age: 61 Year
  Sex: Female

DRUGS (6)
  1. FOSAMAX [Suspect]
     Indication: OSTEOPENIA
     Dosage: 70 MG/ONCE WEEKLY
     Route: 048
     Dates: start: 2010
  2. ZOCOR [Concomitant]
     Route: 048
  3. CALCIUM ACETATE [Concomitant]
  4. VITAMINS (UNSPECIFIED) [Concomitant]
  5. OMEPRAZOLE [Concomitant]
     Route: 048
  6. ASPIRIN [Concomitant]

REACTIONS (2)
  - Osteonecrosis of jaw [Not Recovered/Not Resolved]
  - Tooth repair [Not Recovered/Not Resolved]
